FAERS Safety Report 8782609 (Version 1)
Quarter: 2012Q4

REPORT INFORMATION
  Report Type: Report from Study
  Country: IT (occurrence: IT)
  Receive Date: 20120913
  Receipt Date: 20120913
  Transmission Date: 20130627
  Serious: Yes (Death, Other)
  Sender: FDA-Public Use
  Company Number: IT-PFIZER INC-2012222203

PATIENT
  Age: 62 Year
  Sex: Male
  Weight: 100 kg

DRUGS (6)
  1. SOMAVERT [Suspect]
     Indication: ACROMEGALY
     Dosage: 15 mg/day, 7 injections/week
     Dates: start: 200303
  2. EUTIROX [Concomitant]
     Indication: BLOOD THYROID STIMULATING HORMONE DECREASED
     Dosage: UNK
     Dates: start: 20070618
  3. HYDROCORTISONE [Concomitant]
     Indication: BLOOD CORTICOTROPHIN DECREASED
     Dosage: UNK
     Dates: start: 20070618
  4. QUINAZIDE [Concomitant]
     Indication: HYPERTENSION
     Dosage: UNK
     Dates: start: 20070618
  5. NORVASC [Concomitant]
     Indication: HYPERTENSION
     Dosage: UNK
     Dates: start: 20070618
  6. METFORAL [Concomitant]
     Indication: TYPE 2 DIABETES MELLITUS
     Dosage: UNK
     Route: 048
     Dates: start: 2002

REACTIONS (1)
  - Death [Fatal]
